FAERS Safety Report 5428839-4 (Version None)
Quarter: 2007Q3

REPORT INFORMATION
  Report Type: 
  Country: None (occurrence: None)
  Receive Date: 20070829
  Receipt Date: 20060822
  Transmission Date: 20080115
  Serious: No
  Sender: FDA-Public Use
  Company Number: A0617687A

PATIENT
  Age: 26 Year
  Sex: Female

DRUGS (2)
  1. ZOVIRAX [Suspect]
     Indication: GENITAL HERPES
     Dosage: 400MG TWICE PER DAY
     Route: 048
     Dates: start: 20060822
  2. PRENATAL [Concomitant]

REACTIONS (1)
  - DRUG EXPOSURE DURING PREGNANCY [None]
